FAERS Safety Report 7351445-1 (Version None)
Quarter: 2011Q1

REPORT INFORMATION
  Report Type: 
  Country: None (occurrence: None)
  Receive Date: 20110314
  Receipt Date: 20110305
  Transmission Date: 20110831
  Serious: Yes (Hospitalization, Other)
  Sender: FDA-Public Use
  Company Number: US-ABBOTT-10P-163-0692070-00

PATIENT
  Age: 64 Year
  Sex: Male

DRUGS (14)
  1. METFORMIN [Concomitant]
     Indication: PRODUCT USED FOR UNKNOWN INDICATION
     Route: 048
  2. AMARYL [Concomitant]
     Indication: BLOOD GLUCOSE
     Route: 048
  3. VALIUM [Concomitant]
     Indication: PRODUCT USED FOR UNKNOWN INDICATION
     Route: 048
  4. SPECTRA SR [Concomitant]
     Indication: PRODUCT USED FOR UNKNOWN INDICATION
  5. CALCIUM [Concomitant]
     Indication: MINERAL SUPPLEMENTATION
  6. HUMIRA [Suspect]
     Indication: CROHN'S DISEASE
     Dates: start: 20081201, end: 20110115
  7. GEMFIBROZIL [Concomitant]
     Indication: BLOOD CHOLESTEROL
     Route: 048
  8. ASCORBIC ACID [Concomitant]
     Indication: VITAMIN SUPPLEMENTATION
  9. PROZAC [Concomitant]
     Indication: PRODUCT USED FOR UNKNOWN INDICATION
     Route: 048
  10. LISINOPRIL [Concomitant]
     Indication: PRODUCT USED FOR UNKNOWN INDICATION
     Route: 048
  11. VICODIN [Concomitant]
     Indication: PAIN
     Dosage: THREE OR FOUR TIMES A DAY
     Route: 048
  12. KLONOPIN [Concomitant]
     Indication: PRODUCT USED FOR UNKNOWN INDICATION
     Route: 048
  13. ASPIRIN [Concomitant]
     Indication: PRODUCT USED FOR UNKNOWN INDICATION
     Route: 048
  14. VIT B12 [Concomitant]
     Indication: PRODUCT USED FOR UNKNOWN INDICATION
     Route: 050

REACTIONS (30)
  - EPISTAXIS [None]
  - PSORIASIS [None]
  - GRAFT HAEMORRHAGE [None]
  - BLOOD CREATININE INCREASED [None]
  - UPPER RESPIRATORY TRACT INFECTION [None]
  - ULCER HAEMORRHAGE [None]
  - OROPHARYNGEAL PAIN [None]
  - ABSCESS [None]
  - INTERVERTEBRAL DISC PROTRUSION [None]
  - DELIRIUM [None]
  - DYSPHAGIA [None]
  - COUGH [None]
  - INSOMNIA [None]
  - WOUND SECRETION [None]
  - INTERNATIONAL NORMALISED RATIO INCREASED [None]
  - SKIN DISCOLOURATION [None]
  - BLOOD PRESSURE DECREASED [None]
  - CONSTIPATION [None]
  - STAPHYLOCOCCAL INFECTION [None]
  - SNEEZING [None]
  - SKIN LESION [None]
  - GAIT DISTURBANCE [None]
  - FALL [None]
  - PYREXIA [None]
  - SWELLING [None]
  - INTRASPINAL ABSCESS [None]
  - RED BLOOD CELL SEDIMENTATION RATE INCREASED [None]
  - INTESTINAL OBSTRUCTION [None]
  - BLOOD UREA INCREASED [None]
  - BACK PAIN [None]
